FAERS Safety Report 6727700-2 (Version None)
Quarter: 2010Q2

REPORT INFORMATION
  Report Type: 
  Country: None (occurrence: None)
  Receive Date: 20100512
  Receipt Date: 20100426
  Transmission Date: 20101027
  Serious: Yes (Other)
  Sender: FDA-Public Use
  Company Number: 7002763

PATIENT
  Sex: Female

DRUGS (1)
  1. REBIF [Suspect]
     Dosage: 44 MCG

REACTIONS (2)
  - BLINDNESS [None]
  - OPTIC NEURITIS [None]
